FAERS Safety Report 6644154-5 (Version None)
Quarter: 2010Q1

REPORT INFORMATION
  Report Type: 
  Country: None (occurrence: None)
  Receive Date: 20100322
  Receipt Date: 20100317
  Transmission Date: 20100710
  Serious: Yes (Death, Other)
  Sender: FDA-Public Use
  Company Number: PHHY2008GB09171

PATIENT
  Age: 58 Year
  Sex: Male

DRUGS (8)
  1. CLOZAPINE [Suspect]
     Indication: SCHIZOPHRENIA
     Dosage: UNK
     Dates: start: 20010701, end: 20040724
  2. ZAPONEX [Suspect]
     Dosage: 400 MG, DAILY
     Route: 048
     Dates: start: 20040725
  3. CODEINE SULFATE [Concomitant]
     Indication: PAIN
     Dosage: 30 MG, QD
  4. FLUOXETINE [Concomitant]
     Indication: DEPRESSION
     Dosage: 20 MG, QD
  5. PARACETAMOL [Concomitant]
     Indication: PAIN
     Dosage: 4 G, QD
  6. SPIRONOLACTONE [Concomitant]
     Indication: CARDIAC FAILURE
     Dosage: 50 MG, QD
  7. SANDO K [Concomitant]
     Indication: CARDIAC FAILURE
     Dosage: 24 MMOL, QD
  8. FUROSEMIDE [Concomitant]
     Indication: CARDIAC FAILURE
     Dosage: 40 MG, QD

REACTIONS (4)
  - CARDIAC FAILURE [None]
  - LUNG NEOPLASM MALIGNANT [None]
  - LYMPHOCYTOSIS [None]
  - NEUTROPHILIA [None]
